FAERS Safety Report 8306193-8 (Version None)
Quarter: 2012Q2

REPORT INFORMATION
  Report Type: 
  Country: None (occurrence: None)
  Receive Date: 20120423
  Receipt Date: 20120419
  Transmission Date: 20120825
  Serious: Yes (Hospitalization)
  Sender: FDA-Public Use
  Company Number: AU-AMGEN-AUSSP2012001526

PATIENT
  Age: 57 Year
  Sex: Female
  Weight: 60.7 kg

DRUGS (11)
  1. NEULASTA [Suspect]
     Indication: DIFFUSE LARGE B-CELL LYMPHOMA
     Dosage: 6 MG, PER CHEMO REGIM
     Route: 058
     Dates: start: 20111126
  2. RITUXIMAB [Suspect]
     Indication: DIFFUSE LARGE B-CELL LYMPHOMA
     Dosage: 630 MG, PER CHEMO REGIM
     Route: 042
     Dates: start: 20111123
  3. CYCLOPHOSPHAMIDE [Suspect]
     Indication: DIFFUSE LARGE B-CELL LYMPHOMA
     Dosage: 1260 MG, PER CHEMO REGIM
     Route: 042
     Dates: start: 20111123
  4. DOXORUBICIN HCL [Suspect]
     Indication: DIFFUSE LARGE B-CELL LYMPHOMA
     Dosage: 84 MG, PER CHEMO REGIM
     Route: 042
     Dates: start: 20111123
  5. ETOPOSIDE [Suspect]
     Indication: DIFFUSE LARGE B-CELL LYMPHOMA
     Dosage: 160 MG, UNK
     Route: 042
     Dates: start: 20120130
  6. ALLOPURINOL [Concomitant]
     Dosage: 300 MG, UNK
     Dates: start: 20111123
  7. CARBOPLATIN [Suspect]
     Indication: DIFFUSE LARGE B-CELL LYMPHOMA
     Dosage: 550 MG, UNK
     Route: 042
     Dates: start: 20120130
  8. IFOSFAMIDE [Suspect]
     Indication: DIFFUSE LARGE B-CELL LYMPHOMA
     Dosage: 2665 MG, UNK
     Route: 042
     Dates: start: 20120130
  9. VINCRISTINE [Suspect]
     Indication: DIFFUSE LARGE B-CELL LYMPHOMA
     Dosage: 2 MG, PER CHEMO REGIM
     Route: 042
     Dates: start: 20111123
  10. PREDNISONE [Suspect]
     Indication: DIFFUSE LARGE B-CELL LYMPHOMA
     Dosage: 100 MG, UNK
     Route: 048
     Dates: start: 20111123
  11. BACTRIM DS [Concomitant]
     Dosage: 1 DF, 3 TIMES/WK
     Dates: start: 20111123

REACTIONS (1)
  - FEBRILE NEUTROPENIA [None]
